FAERS Safety Report 6694965-5 (Version None)
Quarter: 2010Q2

REPORT INFORMATION
  Report Type: 
  Country: None (occurrence: None)
  Receive Date: 20100423
  Receipt Date: 20100414
  Transmission Date: 20101027
  Serious: Yes (Other)
  Sender: FDA-Public Use
  Company Number: DE-AMGEN-QUU406131

PATIENT
  Sex: Female
  Weight: 51 kg

DRUGS (10)
  1. NPLATE [Suspect]
     Indication: THROMBOCYTOPENIA
     Dates: start: 20091116, end: 20100101
  2. DECORTIN-H [Concomitant]
     Dates: end: 20080924
  3. BISOPROLOL [Concomitant]
  4. CITALOPRAM HYDROBROMIDE [Concomitant]
  5. PANTOZOL [Concomitant]
  6. UNSPECIFIED STEROIDS [Concomitant]
  7. DIPYRONE TAB [Concomitant]
  8. KALINOR RETARD [Concomitant]
  9. CORTISONE [Concomitant]
     Dates: start: 20080101
  10. VELBE [Concomitant]
     Dates: end: 20080903

REACTIONS (7)
  - DRUG INEFFECTIVE [None]
  - FRACTURE [None]
  - GASTRITIS EROSIVE [None]
  - HIATUS HERNIA [None]
  - PULMONARY FIBROSIS [None]
  - PULMONARY MASS [None]
  - THERAPEUTIC RESPONSE DECREASED [None]
